FAERS Safety Report 14103166 (Version 1)
Quarter: 2017Q4

REPORT INFORMATION
  Report Type: Spontaneous
  Country: US (occurrence: US)
  Receive Date: 20171018
  Receipt Date: 20171018
  Transmission Date: 20180321
  Serious: No
  Sender: FDA-Public Use
  Company Number: US-GLAXOSMITHKLINE-US2017GSK159473

PATIENT
  Sex: Female

DRUGS (1)
  1. EXCEDRIN MIGRAINE [Suspect]
     Active Substance: ACETAMINOPHEN\ASPIRIN\CAFFEINE
     Indication: MIGRAINE
     Dosage: UNK
     Dates: start: 19970131, end: 20171013

REACTIONS (7)
  - Ocular hyperaemia [Unknown]
  - Pharyngeal oedema [Unknown]
  - Eye swelling [Unknown]
  - Drug hypersensitivity [Unknown]
  - Swelling face [Unknown]
  - Eyelid oedema [Unknown]
  - Swelling [Unknown]

NARRATIVE: CASE EVENT DATE: 20171013
